FAERS Safety Report 9516238 (Version 1)
Quarter: 2013Q3

REPORT INFORMATION
  Report Type: Spontaneous
  Country: IT (occurrence: IT)
  Receive Date: 20130911
  Receipt Date: 20130911
  Transmission Date: 20140515
  Serious: Yes (Other)
  Sender: FDA-Public Use
  Company Number: PHHY2013IT096460

PATIENT
  Sex: Male

DRUGS (7)
  1. VINCRISTINE [Suspect]
     Indication: HODGKIN^S DISEASE
     Dosage: 1 MG/M2, UNK
  2. VINBLASTINE [Suspect]
     Indication: HODGKIN^S DISEASE
     Dosage: 4.5 MG/M2, UNK
  3. BLEOMYCIN [Suspect]
     Indication: HODGKIN^S DISEASE
     Dosage: 7 MG/M2, UNK
  4. PREDNISONE [Suspect]
     Indication: HODGKIN^S DISEASE
     Dosage: 50 MG, UNK
  5. CYCLOPHOSPHAMIDE [Suspect]
     Indication: HODGKIN^S DISEASE
     Dosage: 470 MG/M2, UNK
  6. ADRIAMYCIN [Suspect]
     Indication: HODGKIN^S DISEASE
     Dosage: 24 MG/M2, UNK
  7. PROCARBAZINE [Suspect]
     Indication: HODGKIN^S DISEASE
     Dosage: 100 MG/DAY ALTERNATING WITH 150 MG/DAY FOR A TOTAL OF SEVEN DAYS

REACTIONS (2)
  - Renal impairment [Unknown]
  - Hypertension [Unknown]
